FAERS Safety Report 7183178-9 (Version None)
Quarter: 2010Q4

REPORT INFORMATION
  Report Type: 
  Country: None (occurrence: None)
  Receive Date: 20101220
  Receipt Date: 20101220
  Transmission Date: 20110411
  Serious: Yes (Hospitalization)
  Sender: FDA-Public Use
  Company Number: None

PATIENT
  Age: 52 Year
  Sex: Male

DRUGS (2)
  1. MEPERIDINE HCL [Suspect]
     Indication: ENDOSCOPY
     Dosage: 50 MG ONCE IV
     Route: 042
     Dates: start: 20101020, end: 20101020
  2. MIDAZOLAM HCL [Suspect]
     Indication: ENDOSCOPY
     Dosage: 20 MG ONCE IV
     Route: 042
     Dates: start: 20101020, end: 20101020

REACTIONS (1)
  - HYPOTENSION [None]
